FAERS Safety Report 13754421 (Version 1)
Quarter: 2017Q3

REPORT INFORMATION
  Report Type: Spontaneous
  Country: US (occurrence: US)
  Receive Date: 20170714
  Receipt Date: 20170714
  Transmission Date: 20171127
  Serious: Yes (Other)
  Sender: FDA-Public Use
  Company Number: None

PATIENT
  Age: 74 Year
  Sex: Female
  Weight: 57.66 kg

DRUGS (3)
  1. RECLAST [Suspect]
     Active Substance: ZOLEDRONIC ACID
     Indication: BONE DISORDER
     Dosage: 1X PER YEAR
     Dates: start: 20170609, end: 20170609
  2. CENTRUM SILVER [Concomitant]
     Active Substance: MINERALS\VITAMINS
  3. BABY ASPRIN [Concomitant]
     Active Substance: ASPIRIN

REACTIONS (3)
  - Pain [None]
  - Back pain [None]
  - Muscle tightness [None]

NARRATIVE: CASE EVENT DATE: 20170609
